FAERS Safety Report 8960708 (Version 1)
Quarter: 2012Q4

REPORT INFORMATION
  Report Type: 
  Country: JP (occurrence: JP)
  Receive Date: 20121212
  Receipt Date: 20121212
  Transmission Date: 20130627
  Serious: Yes (Other)
  Sender: FDA-Public Use
  Company Number: CHNY2012JP000692

PATIENT
  Sex: Female

DRUGS (1)
  1. NICOTINELL TTS 10 [Suspect]
     Indication: SMOKING CESSATION THERAPY
     Dosage: Unk, Unk
     Route: 062
     Dates: start: 20121116, end: 20121203

REACTIONS (4)
  - Hallucination [Recovered/Resolved]
  - Decreased appetite [Recovered/Resolved]
  - Chest discomfort [Recovered/Resolved]
  - Somnolence [Unknown]
